FAERS Safety Report 4961622-2 (Version None)
Quarter: 2006Q1

REPORT INFORMATION
  Report Type: 
  Country: None (occurrence: None)
  Receive Date: 20060329
  Receipt Date: 20060320
  Transmission Date: 20060701
  Serious: Yes (Death, Other)
  Sender: FDA-Public Use
  Company Number: 2006-BP-03109RO

PATIENT
  Age: 68 Year
  Sex: Female

DRUGS (3)
  1. DIGOXIN [Suspect]
     Indication: ATRIAL FIBRILLATION
     Dosage: 0.25 MG DAILY (0.25 MG), PO
     Route: 048
  2. PAROXETINE                (PAROXETINE) [Suspect]
     Indication: DEPRESSION
     Dosage: 20 MG DAILY (0.25 MG), PO
     Route: 048
  3. WARFARIN SODIUM [Concomitant]

REACTIONS (16)
  - ABASIA [None]
  - ATRIOVENTRICULAR BLOCK COMPLETE [None]
  - BEDRIDDEN [None]
  - BRADYCARDIA [None]
  - DELIRIUM [None]
  - DISORIENTATION [None]
  - DIZZINESS [None]
  - DRUG INTERACTION [None]
  - DYSPHAGIA [None]
  - HALLUCINATION, VISUAL [None]
  - NAUSEA [None]
  - ORAL INTAKE REDUCED [None]
  - PNEUMONIA ASPIRATION [None]
  - THERAPEUTIC AGENT TOXICITY [None]
  - VENTRICULAR EXTRASYSTOLES [None]
  - VOMITING [None]
